FAERS Safety Report 6835875-X (Version None)
Quarter: 2010Q3

REPORT INFORMATION
  Report Type: 
  Country: None (occurrence: None)
  Receive Date: 20100712
  Receipt Date: 20100712
  Transmission Date: 20110219
  Serious: Yes (Other)
  Sender: FDA-Public Use
  Company Number: None

PATIENT
  Sex: Female

DRUGS (1)
  1. ALENDRONATE SODIUM  70NG       TEVA [Suspect]
     Dosage: 1 TABLET ONCE A WEEK PO
     Route: 048
     Dates: start: 20020101, end: 20100512

REACTIONS (3)
  - ARTHRALGIA [None]
  - GAIT DISTURBANCE [None]
  - MYALGIA [None]
